FAERS Safety Report 16153545 (Version 1)
Quarter: 2019Q2

REPORT INFORMATION
  Report Type: Report from Study
  Country: US (occurrence: US)
  Receive Date: 20190403
  Receipt Date: 20190403
  Transmission Date: 20190711
  Serious: Yes (Hospitalization, Other)
  Sender: FDA-Public Use
  Company Number: US-BIOGEN-2019BI00717482

PATIENT
  Age: 71 Year
  Sex: Female

DRUGS (1)
  1. TECFIDERA [Suspect]
     Active Substance: DIMETHYL FUMARATE
     Indication: MULTIPLE SCLEROSIS
     Route: 048
     Dates: start: 201810

REACTIONS (8)
  - Multiple sclerosis [Unknown]
  - Systemic lupus erythematosus [Unknown]
  - Sjogren^s syndrome [Unknown]
  - Optic neuritis [Unknown]
  - Vascular occlusion [Unknown]
  - Throat irritation [Unknown]
  - Optic atrophy [Unknown]
  - Lung neoplasm malignant [Unknown]

NARRATIVE: CASE EVENT DATE: 201902
